FAERS Safety Report 7711777-1 (Version None)
Quarter: 2011Q3

REPORT INFORMATION
  Report Type: 
  Country: None (occurrence: None)
  Receive Date: 20110826
  Receipt Date: 20110818
  Transmission Date: 20111222
  Serious: Yes (Death, Life-Threatening, Hospitalization)
  Sender: FDA-Public Use
  Company Number: MX-SANOFI-AVENTIS-2011SA043698

PATIENT
  Age: 85 Year
  Sex: Male
  Weight: 74 kg

DRUGS (6)
  1. OMEPRAZOLE [Concomitant]
     Route: 042
  2. RANITIDINE [Concomitant]
     Indication: GASTRIC DISORDER
  3. PRAZOSIN HCL [Concomitant]
     Indication: HYPERTENSION
     Route: 048
  4. DIGOXIN [Concomitant]
  5. DRONEDARONE HCL [Suspect]
     Indication: ATRIAL FIBRILLATION
     Route: 048
     Dates: start: 20110214, end: 20110704
  6. FUROSEMIDE [Concomitant]
     Indication: RENAL FAILURE

REACTIONS (1)
  - RENAL FAILURE ACUTE [None]
